FAERS Safety Report 18778025 (Version 1)
Quarter: 2021Q1

REPORT INFORMATION
  Report Type: Spontaneous
  Country: JP (occurrence: JP)
  Receive Date: 20210122
  Receipt Date: 20210122
  Transmission Date: 20210419
  Serious: Yes (Death, Life-Threatening, Hospitalization, Other)
  Sender: FDA-Public Use
  Company Number: JP-009507513-2010JPN003074J

PATIENT
  Age: 59 Year
  Sex: Male
  Weight: 59 kg

DRUGS (7)
  1. CARBOPLATIN. [Suspect]
     Active Substance: CARBOPLATIN
     Indication: NON-SMALL CELL LUNG CANCER STAGE IV
     Dosage: AUC=6, Q3W
     Route: 041
     Dates: start: 20200818, end: 20200911
  2. OXYCODONE HYDROCHLORIDE. [Concomitant]
     Active Substance: OXYCODONE HYDROCHLORIDE
     Indication: PAIN
     Dosage: 15 MILLIGRAM, BID
     Route: 048
     Dates: start: 20200815, end: 20210113
  3. CELECOX [Concomitant]
     Active Substance: CELECOXIB
     Indication: PAIN
     Dosage: 200 MILLIGRAM, BID
     Route: 048
     Dates: start: 20200718, end: 20210113
  4. ALIMTA [Suspect]
     Active Substance: PEMETREXED DISODIUM
     Indication: NON-SMALL CELL LUNG CANCER STAGE IV
     Dosage: 500MILLIGRAM/SQ. METER, Q3W
     Route: 041
     Dates: start: 20200818, end: 20200911
  5. LANSOPRAZOLE. [Concomitant]
     Active Substance: LANSOPRAZOLE
     Indication: GASTRITIS
     Dosage: 15 MILLIGRAM/DAY
     Route: 048
     Dates: start: 20200718, end: 20210113
  6. PANVITAN [Concomitant]
     Active Substance: VITAMINS
     Indication: NON-SMALL CELL LUNG CANCER STAGE IV
     Dosage: 1 GRAM/DAY
     Route: 048
     Dates: start: 20200801, end: 20201002
  7. KEYTRUDA [Suspect]
     Active Substance: PEMBROLIZUMAB
     Indication: NON-SMALL CELL LUNG CANCER STAGE IV
     Dosage: 200 MILLIGRAM, Q3W
     Route: 041
     Dates: start: 20200818, end: 20200818

REACTIONS (3)
  - Drug eruption [Recovered/Resolved]
  - Malignant neoplasm progression [Fatal]
  - Immune-mediated hepatic disorder [Recovering/Resolving]

NARRATIVE: CASE EVENT DATE: 20200826
